FAERS Safety Report 18840623 (Version 1)
Quarter: 2021Q1

REPORT INFORMATION
  Report Type: Spontaneous
  Country: US (occurrence: US)
  Receive Date: 20210204
  Receipt Date: 20210204
  Transmission Date: 20210419
  Serious: No
  Sender: FDA-Public Use
  Company Number: NVSC2021US016471

PATIENT
  Sex: Male

DRUGS (1)
  1. PROMACTA [Suspect]
     Active Substance: ELTROMBOPAG OLAMINE
     Indication: HEPATITIS B
     Dosage: 50 MG, QD
     Route: 048
     Dates: start: 20201223

REACTIONS (4)
  - Abdominal pain upper [Unknown]
  - Diarrhoea [Unknown]
  - Arthralgia [Unknown]
  - Myalgia [Unknown]
